FAERS Safety Report 25439036 (Version 3)
Quarter: 2025Q3

REPORT INFORMATION
  Report Type: Spontaneous
  Country: IN (occurrence: IN)
  Receive Date: 20250616
  Receipt Date: 20250717
  Transmission Date: 20251020
  Serious: No
  Sender: CIPLA
  Company Number: IN-CIPLA LTD.-2025IN07003

PATIENT

DRUGS (1)
  1. EFAVIRENZ\EMTRICITABINE\TENOFOVIR DISOPROXIL FUMARATE [Suspect]
     Active Substance: EFAVIRENZ\EMTRICITABINE\TENOFOVIR DISOPROXIL FUMARATE
     Indication: HIV infection
     Route: 065
     Dates: start: 20250507, end: 20250519

REACTIONS (6)
  - Movement disorder [Recovered/Resolved]
  - Balance disorder [Recovered/Resolved]
  - Nausea [Unknown]
  - Diarrhoea [Recovered/Resolved]
  - Asthenia [Unknown]
  - Vomiting [Recovered/Resolved]

NARRATIVE: CASE EVENT DATE: 20250507
